FAERS Safety Report 16096442 (Version 2)
Quarter: 2019Q2

REPORT INFORMATION
  Report Type: Spontaneous
  Country: JP (occurrence: JP)
  Receive Date: 20190320
  Receipt Date: 20190402
  Transmission Date: 20190711
  Serious: No
  Sender: FDA-Public Use
  Company Number: JP-TEVA-2019-JP-001585J

PATIENT
  Age: 87 Year
  Sex: Female

DRUGS (3)
  1. CARBOPLATIN. [Concomitant]
     Active Substance: CARBOPLATIN
     Indication: LUNG NEOPLASM MALIGNANT
     Route: 041
  2. ETOPOSIDE INTRAVENOUS INFUSION 100MG TAIYO [Suspect]
     Active Substance: ETOPOSIDE
     Indication: LUNG NEOPLASM MALIGNANT
     Route: 041
  3. ETOPOSIDE INTRAVENOUS INFUSION 100MG TAIYO [Suspect]
     Active Substance: ETOPOSIDE
     Dosage: 60 MG/M2 DAILY;
     Route: 041

REACTIONS (1)
  - Neutrophil count decreased [Unknown]
